FAERS Safety Report 23482427 (Version 2)
Quarter: 2024Q1

REPORT INFORMATION
  Report Type: Spontaneous
  Country: US (occurrence: US)
  Receive Date: 20240205
  Receipt Date: 20240208
  Transmission Date: 20240410
  Serious: No
  Sender: FDA-Public Use
  Company Number: US-Calliditas-2024CAL00132

PATIENT
  Age: 68 Year
  Sex: Female
  Weight: 69 kg

DRUGS (1)
  1. TARPEYO [Suspect]
     Active Substance: BUDESONIDE
     Indication: IgA nephropathy
     Dosage: 16 MG (4 MG CAPSULES) ONCE DAILY
     Route: 048
     Dates: start: 20230527, end: 20240117

REACTIONS (9)
  - Sensitive skin [Recovering/Resolving]
  - Skin atrophy [Recovering/Resolving]
  - Scratch [Recovering/Resolving]
  - Contusion [Recovering/Resolving]
  - Skin haemorrhage [Recovering/Resolving]
  - Anxiety [Recovering/Resolving]
  - Therapy cessation [Unknown]
  - Headache [Recovered/Resolved]
  - Insomnia [Recovered/Resolved]

NARRATIVE: CASE EVENT DATE: 20231027
